FAERS Safety Report 18398733 (Version 2)
Quarter: 2020Q4

REPORT INFORMATION
  Report Type: Spontaneous
  Country: US (occurrence: US)
  Receive Date: 20201019
  Receipt Date: 20201119
  Transmission Date: 20210114
  Serious: No
  Sender: FDA-Public Use
  Company Number: US-PFIZER INC-2020401264

PATIENT
  Age: 52 Year
  Sex: Female
  Weight: 61.59 kg

DRUGS (2)
  1. IBRANCE [Suspect]
     Active Substance: PALBOCICLIB
     Indication: RETROPERITONEAL CANCER
     Dosage: 125 MG, CYCLIC (21 DAYS ON, 7 DAYS OFF)
     Route: 048
     Dates: start: 202009
  2. IBRANCE [Suspect]
     Active Substance: PALBOCICLIB
     Dosage: 100 MG, CYCLIC (21 DAYS ON, 7 DAYS OFF)
     Route: 048
     Dates: start: 20201019

REACTIONS (5)
  - Blood count abnormal [Unknown]
  - Product use in unapproved indication [Unknown]
  - Alopecia [Unknown]
  - Osteopenia [Unknown]
  - Off label use [Unknown]

NARRATIVE: CASE EVENT DATE: 202009
